FAERS Safety Report 7600218-0 (Version None)
Quarter: 2011Q3

REPORT INFORMATION
  Report Type: 
  Country: None (occurrence: None)
  Receive Date: 20110711
  Receipt Date: 20110509
  Transmission Date: 20111222
  Serious: No
  Sender: FDA-Public Use
  Company Number: US-KINGPHARMUSA00001-K201100588

PATIENT
  Sex: Female

DRUGS (1)
  1. ALSUMA [Suspect]
     Indication: MIGRAINE
     Dosage: UNK

REACTIONS (1)
  - DRUG INEFFECTIVE [None]
